FAERS Safety Report 10239674 (Version 1)
Quarter: 2014Q2

REPORT INFORMATION
  Report Type: Spontaneous
  Country: US (occurrence: None)
  Receive Date: 20140612
  Receipt Date: 20140612
  Transmission Date: 20141212
  Serious: Yes (Other)
  Sender: FDA-Public Use
  Company Number: SYM-2014-21880

PATIENT
  Age: 62 Year
  Sex: Male

DRUGS (14)
  1. BUPROPION HYDROCHLORIDE [Suspect]
     Indication: PRODUCT USED FOR UNKNOWN INDICATION
     Dosage: 250 MG, 2 IN 1 D, ORAL
     Route: 048
  2. TRAZODONE (TRAZODONE) [Suspect]
     Indication: INSOMNIA
     Route: 048
  3. TRAMADOL HYDROCHLORIDE [Suspect]
     Indication: PAIN
     Route: 048
  4. OXYCODONE (OXYCODONE) [Suspect]
     Indication: PAIN
     Route: 048
  5. VIGRAN (TABLET) ERGOCALCIFEROL, ASCORBIC ACID, PYRIDOXINE HYDROCHLORIDE, THIAMINE HYDROCHLORIDE, RETINOL, RIBOFLAVIN, NICOTINAMIDE, CALCIUM PANTOTHENATE) [Concomitant]
  6. LORAZEPAM (LORAZEPAM) [Concomitant]
  7. HEPARIN (HEPARIN) [Concomitant]
  8. RANITIDINE HYDROCHLORIDE (RANITIDINE HYDROCHLORIDE) [Concomitant]
  9. DOCUSATE (DOCUSATE) [Concomitant]
  10. PARACETAMOL (PARACETAMOL) [Concomitant]
  11. MACROGOL (MACROGOL) [Concomitant]
  12. LEKOVIT CA (COLECALCIFEROL, CALCIUM CARBONATE) [Concomitant]
  13. FOLIC ACID (FOLIC ACID) [Concomitant]
  14. THIAMINE (THIAMINE) [Concomitant]

REACTIONS (3)
  - Serotonin syndrome [None]
  - Fall [None]
  - Loss of consciousness [None]
